FAERS Safety Report 19717888 (Version 1)
Quarter: 2021Q3

REPORT INFORMATION
  Report Type: Spontaneous
  Country: FR (occurrence: FR)
  Receive Date: 20210819
  Receipt Date: 20210819
  Transmission Date: 20211014
  Serious: Yes (Hospitalization)
  Sender: FDA-Public Use
  Company Number: NVSC2021FR184242

PATIENT
  Age: 82 Year
  Sex: Female

DRUGS (2)
  1. HEMIGOXINE NATIVELLE [Suspect]
     Active Substance: DIGOXIN
     Indication: VENTRICULAR DYSFUNCTION
     Dosage: 1 DF, QD
     Route: 048
     Dates: start: 202011, end: 20210616
  2. BISOPROLOL FUMARATE. [Suspect]
     Active Substance: BISOPROLOL FUMARATE
     Indication: VENTRICULAR DYSFUNCTION
     Dosage: 5 MG, Q12H
     Route: 048
     Dates: start: 202011, end: 20210616

REACTIONS (3)
  - Cardioactive drug level increased [Recovered/Resolved]
  - Atrial fibrillation [Recovered/Resolved]
  - Bradycardia [Recovered/Resolved]

NARRATIVE: CASE EVENT DATE: 20210616
